FAERS Safety Report 23937781 (Version 1)
Quarter: 2024Q2

REPORT INFORMATION
  Report Type: Spontaneous
  Country: US (occurrence: US)
  Receive Date: 20240604
  Receipt Date: 20240604
  Transmission Date: 20240716
  Serious: Yes (Other)
  Sender: FDA-Public Use
  Company Number: US-002147023-NVSC2024US113137

PATIENT

DRUGS (2)
  1. LETROZOLE [Suspect]
     Active Substance: LETROZOLE
     Indication: Breast cancer metastatic
     Dosage: 2.5 MG
     Route: 065
     Dates: start: 201804
  2. IBRANCE [Suspect]
     Active Substance: PALBOCICLIB
     Indication: Breast cancer metastatic
     Dosage: 125 MG, 2 WEEKS ON 1 WEEK OFF
     Route: 048
     Dates: start: 201804

REACTIONS (4)
  - Neutropenia [Unknown]
  - Pruritus [Recovered/Resolved]
  - Skin disorder [Recovered/Resolved]
  - Inappropriate schedule of product administration [Not Recovered/Not Resolved]
